FAERS Safety Report 7378550-8 (Version None)
Quarter: 2011Q1

REPORT INFORMATION
  Report Type: 
  Country: None (occurrence: None)
  Receive Date: 20110328
  Receipt Date: 20110315
  Transmission Date: 20110831
  Serious: Yes (Hospitalization)
  Sender: FDA-Public Use
  Company Number: US-TYCO HEALTHCARE/MALLINCKRODT-T201100609

PATIENT
  Age: 29 Year
  Sex: Male

DRUGS (1)
  1. METHYLIN [Suspect]
     Dosage: 35 TABLETS
     Route: 042

REACTIONS (7)
  - TOXICITY TO VARIOUS AGENTS [None]
  - RHABDOMYOLYSIS [None]
  - SENSORY LOSS [None]
  - FEAR [None]
  - DYSPNOEA [None]
  - INTENTIONAL DRUG MISUSE [None]
  - CHEST PAIN [None]
